FAERS Safety Report 6953521-1 (Version None)
Quarter: 2010Q3

REPORT INFORMATION
  Report Type: 
  Country: None (occurrence: None)
  Receive Date: 20100829
  Receipt Date: 20100618
  Transmission Date: 20110219
  Serious: No
  Sender: FDA-Public Use
  Company Number: US-ABBOTT-10P-163-0652330-00

PATIENT
  Sex: Female
  Weight: 88.53 kg

DRUGS (8)
  1. NIASPAN [Suspect]
     Indication: FUNGAL INFECTION
     Dosage: UP TO 1500 MG
     Dates: start: 19800101, end: 19800101
  2. NIASPAN [Suspect]
     Indication: BLOOD CHOLESTEROL INCREASED
  3. DEPO-ESTRADIOL [Concomitant]
     Indication: PRODUCT USED FOR UNKNOWN INDICATION
     Dosage: 1/2 CC INJECTION
  4. THYROID TAB [Concomitant]
     Indication: PRODUCT USED FOR UNKNOWN INDICATION
  5. METOPROLOL [Concomitant]
     Indication: PRODUCT USED FOR UNKNOWN INDICATION
  6. CARDIAC VITAMINS THAT HAVE BEEN COMPOUNDED BY CARDIOLOGIST [Concomitant]
     Indication: PRODUCT USED FOR UNKNOWN INDICATION
  7. METHADONE [Concomitant]
     Indication: PAIN
     Dosage: 1/8 - 1/2 PILL
  8. BENADRYL [Concomitant]
     Indication: PRODUCT USED FOR UNKNOWN INDICATION

REACTIONS (5)
  - CHILLS [None]
  - DYSPHONIA [None]
  - MALAISE [None]
  - PAIN [None]
  - PRURITUS [None]
